FAERS Safety Report 15128454 (Version 1)
Quarter: 2018Q3

REPORT INFORMATION
  Report Type: Report from Study
  Country: DE (occurrence: DE)
  Receive Date: 20180711
  Receipt Date: 20180711
  Transmission Date: 20181010
  Serious: Yes (Death)
  Sender: FDA-Public Use
  Company Number: DE-ROCHE-1761354

PATIENT
  Age: 75 Year
  Sex: Male
  Weight: 86 kg

DRUGS (10)
  1. IRINOTECAN [Concomitant]
     Active Substance: IRINOTECAN
     Indication: COLORECTAL CANCER
     Route: 042
     Dates: start: 20140630, end: 20140630
  2. 5?FLUOROURACIL [Concomitant]
     Active Substance: FLUOROURACIL
     Route: 041
     Dates: start: 20140916, end: 20140916
  3. BEVACIZUMAB. [Suspect]
     Active Substance: BEVACIZUMAB
     Indication: COLORECTAL CANCER METASTATIC
     Route: 042
     Dates: start: 20131008
  4. 5?FLUOROURACIL [Concomitant]
     Active Substance: FLUOROURACIL
     Route: 041
     Dates: start: 20131008, end: 20131008
  5. 5?FLUOROURACIL [Concomitant]
     Active Substance: FLUOROURACIL
     Indication: COLORECTAL CANCER
     Route: 040
     Dates: start: 20131008, end: 20131008
  6. 5?FLUOROURACIL [Concomitant]
     Active Substance: FLUOROURACIL
     Route: 040
     Dates: start: 20140916, end: 20140916
  7. IRINOTECAN [Concomitant]
     Active Substance: IRINOTECAN
     Route: 042
     Dates: start: 20140916, end: 20140916
  8. OXALIPLATIN. [Concomitant]
     Active Substance: OXALIPLATIN
     Indication: COLORECTAL CANCER
     Route: 042
     Dates: start: 20131008, end: 20131203
  9. BEVACIZUMAB. [Suspect]
     Active Substance: BEVACIZUMAB
     Route: 042
     Dates: start: 20140916
  10. FOLINIC ACID [Concomitant]
     Active Substance: LEUCOVORIN
     Indication: COLORECTAL CANCER
     Route: 042
     Dates: start: 20131008, end: 20140916

REACTIONS (3)
  - Death [Fatal]
  - Mucosal inflammation [Unknown]
  - Stomatitis [Unknown]

NARRATIVE: CASE EVENT DATE: 201410
